FAERS Safety Report 12208453 (Version 5)
Quarter: 2016Q2

REPORT INFORMATION
  Report Type: Spontaneous
  Country: AU (occurrence: AU)
  Receive Date: 20160324
  Receipt Date: 20160525
  Transmission Date: 20160815
  Serious: Yes (Other)
  Sender: FDA-Public Use
  Company Number: AU-ELI_LILLY_AND_COMPANY-AU201603004445

PATIENT
  Age: 67 Year
  Sex: Male

DRUGS (4)
  1. HUMULIN N [Suspect]
     Active Substance: INSULIN HUMAN
     Indication: TYPE 2 DIABETES MELLITUS
     Dosage: 44 U, QD
     Route: 058
     Dates: start: 19940311
  2. VINCRISTINE [Suspect]
     Active Substance: VINCRISTINE
     Indication: LYMPHOMA
     Dosage: UNK, UNKNOWN
     Route: 065
  3. HUMULIN R [Suspect]
     Active Substance: INSULIN HUMAN
     Indication: TYPE 2 DIABETES MELLITUS
     Dosage: 44 U, QD
     Route: 058
     Dates: start: 19940311
  4. ETOPOSIDE. [Concomitant]
     Active Substance: ETOPOSIDE
     Indication: LYMPHOMA
     Dosage: UNK, UNKNOWN
     Route: 065

REACTIONS (17)
  - Pyrexia [Unknown]
  - Nasopharyngitis [Unknown]
  - Lymphoma [Unknown]
  - Viral test positive [Unknown]
  - Hypoglycaemia [Unknown]
  - Paralysis [Unknown]
  - Sluggishness [Unknown]
  - Oropharyngeal pain [Unknown]
  - Atrioventricular block second degree [Recovered/Resolved]
  - Nasal congestion [Unknown]
  - Hyperglycaemia [Unknown]
  - Oral pain [Unknown]
  - Blood glucose abnormal [Unknown]
  - Hypoglycaemia [Unknown]
  - Mouth ulceration [Unknown]
  - Drug ineffective [Unknown]
  - Drug ineffective [Unknown]

NARRATIVE: CASE EVENT DATE: 20000311
